FAERS Safety Report 7608265-X (Version None)
Quarter: 2011Q3

REPORT INFORMATION
  Report Type: 
  Country: None (occurrence: None)
  Receive Date: 20110714
  Receipt Date: 20110706
  Transmission Date: 20111222
  Serious: Yes (Hospitalization)
  Sender: FDA-Public Use
  Company Number: US-CEPHALON-2011003590

PATIENT
  Sex: Female

DRUGS (6)
  1. NABUMETONE [Concomitant]
  2. PROVIGIL [Suspect]
     Indication: NARCOLEPSY
     Route: 048
  3. TOPAMAX [Concomitant]
  4. CYMBALTA [Concomitant]
  5. CLARITIN [Concomitant]
  6. PREMARIN [Concomitant]

REACTIONS (1)
  - ACUTE MYOCARDIAL INFARCTION [None]
